FAERS Safety Report 13552911 (Version 1)
Quarter: 2017Q2

REPORT INFORMATION
  Report Type: Spontaneous
  Country: US (occurrence: US)
  Receive Date: 20170516
  Receipt Date: 20170516
  Transmission Date: 20170830
  Serious: Yes (Death)
  Sender: FDA-Public Use
  Company Number: None

PATIENT
  Age: 64 Year
  Sex: Male

DRUGS (1)
  1. NEXAVAR [Suspect]
     Active Substance: SORAFENIB
     Indication: HEPATIC CANCER
     Dosage: 200MG EVERY OTHER DAY BY MOUTH
     Route: 048
     Dates: start: 20170331

REACTIONS (3)
  - Drug ineffective [None]
  - Blood bilirubin increased [None]
  - Disease progression [None]

NARRATIVE: CASE EVENT DATE: 20170502
